FAERS Safety Report 6371466-5 (Version None)
Quarter: 2009Q3

REPORT INFORMATION
  Report Type: 
  Country: None (occurrence: None)
  Receive Date: 20090923
  Receipt Date: 20080201
  Transmission Date: 20100115
  Serious: Yes (Other)
  Sender: FDA-Public Use
  Company Number: US-ASTRAZENECA-2007UW12840

PATIENT
  Age: 13915 Day
  Sex: Female
  Weight: 104.3 kg

DRUGS (28)
  1. SEROQUEL [Suspect]
     Indication: DEPRESSION
     Route: 048
     Dates: start: 20051217, end: 20061201
  2. SEROQUEL [Suspect]
     Indication: BIPOLAR DISORDER
     Route: 048
     Dates: start: 20051217, end: 20061201
  3. SEROQUEL [Suspect]
     Indication: PSYCHOTIC DISORDER
     Route: 048
     Dates: start: 20051217, end: 20061201
  4. SEROQUEL [Suspect]
     Indication: INSOMNIA
     Route: 048
     Dates: start: 20051217, end: 20061201
  5. SEROQUEL [Suspect]
     Dosage: 100-200 MG
     Route: 048
     Dates: start: 20060202, end: 20060320
  6. SEROQUEL [Suspect]
     Dosage: 100-200 MG
     Route: 048
     Dates: start: 20060202, end: 20060320
  7. SEROQUEL [Suspect]
     Dosage: 100-200 MG
     Route: 048
     Dates: start: 20060202, end: 20060320
  8. SEROQUEL [Suspect]
     Dosage: 100-200 MG
     Route: 048
     Dates: start: 20060202, end: 20060320
  9. SEROQUEL [Suspect]
     Dosage: 100-200 MG
     Route: 048
     Dates: start: 20060801
  10. SEROQUEL [Suspect]
     Dosage: 100-200 MG
     Route: 048
     Dates: start: 20060801
  11. SEROQUEL [Suspect]
     Dosage: 100-200 MG
     Route: 048
     Dates: start: 20060801
  12. SEROQUEL [Suspect]
     Dosage: 100-200 MG
     Route: 048
     Dates: start: 20060801
  13. GEODON [Concomitant]
     Indication: PSYCHOTIC DISORDER
     Dates: start: 20060401
  14. GEODON [Concomitant]
     Dosage: 20-120 MG
     Route: 048
     Dates: start: 20060315
  15. HALDOL [Concomitant]
     Dates: start: 20060401
  16. ATIVAN [Concomitant]
     Dosage: 1-3 MG
     Route: 048
     Dates: start: 20060203
  17. TRAZODONE HCL [Concomitant]
     Dosage: 50-150 MG
     Route: 048
     Dates: start: 20060203
  18. CELEXA [Concomitant]
     Indication: AFFECTIVE DISORDER
     Dosage: 20-40 MG
     Route: 048
     Dates: start: 20060203
  19. GLUCOPHAGE [Concomitant]
     Route: 048
     Dates: start: 20060315
  20. SIMVASTATIN [Concomitant]
     Route: 048
     Dates: start: 20060315
  21. CLONIDINE HCL [Concomitant]
     Dosage: 0.2-0.6 MG
     Route: 048
     Dates: start: 20060315
  22. INSULIN ASPART [Concomitant]
     Route: 058
     Dates: start: 20060315
  23. LANTUS [Concomitant]
     Dosage: 20-30 UNITS
     Route: 058
     Dates: start: 20060315
  24. INSULIN [Concomitant]
     Dates: start: 20011009
  25. LEXAPRO [Concomitant]
     Route: 048
     Dates: start: 20060413
  26. CLOZAPINE [Concomitant]
     Route: 048
     Dates: start: 20060815
  27. DEPAKOTE ER [Concomitant]
     Indication: AFFECTIVE DISORDER
     Dosage: 250-500 MG
     Route: 048
     Dates: start: 20060202
  28. VALPROIC ACID [Concomitant]
     Dates: start: 20060202

REACTIONS (7)
  - BLOOD GLUCOSE INCREASED [None]
  - DIABETES MELLITUS [None]
  - DIABETES MELLITUS INADEQUATE CONTROL [None]
  - HYPERGLYCAEMIA [None]
  - TYPE 1 DIABETES MELLITUS [None]
  - TYPE 2 DIABETES MELLITUS [None]
  - VISION BLURRED [None]
